FAERS Safety Report 14412235 (Version 1)
Quarter: 2018Q1

REPORT INFORMATION
  Report Type: Spontaneous
  Country: US (occurrence: US)
  Receive Date: 20180117
  Receipt Date: 20180117
  Transmission Date: 20180509
  Serious: Yes (Other)
  Sender: FDA-Public Use
  Company Number: None

PATIENT
  Age: 53 Year
  Sex: Female
  Weight: 72 kg

DRUGS (1)
  1. VICODIN [Suspect]
     Active Substance: ACETAMINOPHEN\HYDROCODONE BITARTRATE
     Indication: ANALGESIC THERAPY
     Dates: start: 20110205, end: 20150501

REACTIONS (3)
  - Heart rate increased [None]
  - Pruritus [None]
  - Tinnitus [None]

NARRATIVE: CASE EVENT DATE: 20110205
